FAERS Safety Report 9626579 (Version 1)
Quarter: 2013Q4

REPORT INFORMATION
  Report Type: Spontaneous
  Country: JP (occurrence: JP)
  Receive Date: 20131016
  Receipt Date: 20131016
  Transmission Date: 20140711
  Serious: Yes (Other)
  Sender: FDA-Public Use
  Company Number: JP-WATSON-2013-17953

PATIENT
  Age: 5 Year
  Sex: Male

DRUGS (2)
  1. ISOFLURANE (UNKNOWN) [Suspect]
     Indication: CONVULSION
     Dosage: 4 %, UNK
     Route: 055
  2. ISOFLURANE (UNKNOWN) [Suspect]
     Dosage: 4.5 %, UNK
     Route: 055

REACTIONS (3)
  - Drug withdrawal convulsions [Recovering/Resolving]
  - Hypotension [Unknown]
  - Oliguria [Unknown]
